FAERS Safety Report 15271983 (Version 2)
Quarter: 2018Q4

REPORT INFORMATION
  Report Type: Spontaneous
  Country: US (occurrence: US)
  Receive Date: 20180813
  Receipt Date: 20180911
  Transmission Date: 20190204
  Serious: No
  Sender: FDA-Public Use
  Company Number: US-TAIHO ONCOLOGY  INC-EU-2018-01117

PATIENT
  Age: 73 Year
  Sex: Female
  Weight: 63.56 kg

DRUGS (23)
  1. PROCHLORPERAZINE. [Concomitant]
     Active Substance: PROCHLORPERAZINE
     Dosage: NI
  2. CETIRIZINE [Concomitant]
     Active Substance: CETIRIZINE HYDROCHLORIDE
     Dosage: NI
  3. ONDANSETRON [Concomitant]
     Active Substance: ONDANSETRON
     Dosage: NI
  4. IBUPROFEN. [Concomitant]
     Active Substance: IBUPROFEN
     Dosage: NI
  5. HYDROCODONE BITARTRATE AND ACETAMINOPHEN [Concomitant]
     Active Substance: ACETAMINOPHEN\HYDROCODONE BITARTRATE
     Dosage: NI
  6. OLANZAPINE. [Concomitant]
     Active Substance: OLANZAPINE
     Dosage: NI
  7. LONSURF [Suspect]
     Active Substance: TIPIRACIL HYDROCHLORIDE\TRIFLURIDINE
     Dosage: CYCLE 6
     Route: 048
     Dates: start: 2018, end: 20180810
  8. LUNESTA [Concomitant]
     Active Substance: ESZOPICLONE
     Dosage: NI
  9. APAP [Concomitant]
     Active Substance: ACETAMINOPHEN
     Dosage: NI
  10. MILK OF MAGNESIA [Concomitant]
     Active Substance: MAGNESIUM HYDROXIDE
     Dosage: NI
  11. LONSURF [Suspect]
     Active Substance: TIPIRACIL HYDROCHLORIDE\TRIFLURIDINE
     Indication: COLON CANCER
     Dosage: CYCLE 4
     Route: 048
     Dates: start: 20180329, end: 20180723
  12. AMBIEN [Concomitant]
     Active Substance: ZOLPIDEM TARTRATE
     Dosage: NI
  13. LOSARTAN. [Concomitant]
     Active Substance: LOSARTAN
     Dosage: NI
  14. FENTANYL. [Concomitant]
     Active Substance: FENTANYL
     Dosage: NI
  15. VALACYCLOVIR [Concomitant]
     Active Substance: VALACYCLOVIR HYDROCHLORIDE
     Dosage: NI
  16. LOPERAMIDE [Concomitant]
     Active Substance: LOPERAMIDE
     Dosage: NI
  17. TRAMADOL. [Concomitant]
     Active Substance: TRAMADOL
     Dosage: NI
  18. CLARITIN [Concomitant]
     Active Substance: LORATADINE
     Dosage: NI
  19. TRAZODONE [Concomitant]
     Active Substance: TRAZODONE HYDROCHLORIDE
     Dosage: NI
  20. SENNA [Concomitant]
     Active Substance: SENNA LEAF\SENNOSIDES\SENNOSIDES A AND B
     Dosage: NI
  21. LANSOPRAZOLE. [Concomitant]
     Active Substance: LANSOPRAZOLE
     Dosage: NI
  22. FAMCICLOVIR. [Concomitant]
     Active Substance: FAMCICLOVIR
     Dosage: NI
  23. GABAPENTIN. [Concomitant]
     Active Substance: GABAPENTIN
     Dosage: NI

REACTIONS (3)
  - Neuropathy peripheral [Not Recovered/Not Resolved]
  - Neutrophil count decreased [Not Recovered/Not Resolved]
  - Disease progression [Unknown]

NARRATIVE: CASE EVENT DATE: 2018
